FAERS Safety Report 8561618-8 (Version None)
Quarter: 2012Q3

REPORT INFORMATION
  Report Type: 
  Country: None (occurrence: None)
  Receive Date: 20120727
  Receipt Date: 20120727
  Transmission Date: 20120928
  Serious: Yes (Hospitalization)
  Sender: FDA-Public Use
  Company Number: None

PATIENT
  Age: 80 Year
  Sex: Female
  Weight: 69 kg

DRUGS (14)
  1. FOLIC ACID [Concomitant]
  2. OXYCODONE HCL [Concomitant]
  3. METOPROLOL XR [Concomitant]
  4. FLAX SEED OIL [Concomitant]
  5. BENICAR [Concomitant]
  6. VITAMIN D [Concomitant]
  7. M.V.I. [Concomitant]
  8. LEVOTHYROXINE SODIUM [Concomitant]
  9. ASPIRIN [Suspect]
     Indication: RHEUMATOID ARTHRITIS
     Dosage: 81MG DAILY PO
     Route: 048
  10. CALCITONIN SALMON [Concomitant]
  11. METHOTREXATE [Concomitant]
  12. VIT E [Concomitant]
  13. NABUMETONE [Suspect]
     Indication: RHEUMATOID ARTHRITIS
     Dosage: 500MG TID PO
     Route: 048
  14. CA + VIT D [Concomitant]

REACTIONS (2)
  - DEEP VEIN THROMBOSIS [None]
  - UPPER GASTROINTESTINAL HAEMORRHAGE [None]
